FAERS Safety Report 24929102 (Version 1)
Quarter: 2025Q1

REPORT INFORMATION
  Report Type: Spontaneous
  Country: GB (occurrence: GB)
  Receive Date: 20250205
  Receipt Date: 20250205
  Transmission Date: 20250408
  Serious: Yes (Other)
  Sender: TEVA
  Company Number: GB-MHRA-TPP294155C22613725YC1736783995877

PATIENT
  Age: 26 Year
  Sex: Female
  Weight: 99 kg

DRUGS (21)
  1. LEVOFLOXACIN [Suspect]
     Active Substance: LEVOFLOXACIN
     Indication: Ill-defined disorder
     Dosage: DURATION: 8 DAYS
     Route: 048
     Dates: start: 20250113, end: 20250120
  2. CARBOCYSTEINE [Concomitant]
     Active Substance: CARBOCYSTEINE
     Indication: Ill-defined disorder
     Route: 048
     Dates: start: 20240424
  3. CLARITHROMYCIN [Concomitant]
     Active Substance: CLARITHROMYCIN
     Indication: Ill-defined disorder
     Route: 048
     Dates: start: 20250109, end: 20250113
  4. AZITHROMYCIN [Concomitant]
     Active Substance: AZITHROMYCIN
     Indication: Ill-defined disorder
     Route: 048
     Dates: start: 20241010
  5. PIPERACILLIN [Concomitant]
     Active Substance: PIPERACILLIN
     Indication: Ill-defined disorder
     Route: 065
     Dates: start: 20250109, end: 20250113
  6. BECLOMETHASONE DIPROPIONATE\FORMOTEROL FUMARATE\GLYCOPYRROLATE [Concomitant]
     Active Substance: BECLOMETHASONE DIPROPIONATE\FORMOTEROL FUMARATE\GLYCOPYRROLATE
     Indication: Ill-defined disorder
     Route: 065
     Dates: start: 20240724
  7. ACETAMINOPHEN [Concomitant]
     Active Substance: ACETAMINOPHEN
     Indication: Ill-defined disorder
     Route: 048
     Dates: start: 20250109, end: 20250113
  8. HYLO NIGHT [Concomitant]
     Indication: Ill-defined disorder
     Route: 065
     Dates: start: 20240424
  9. MONTELUKAST [Concomitant]
     Active Substance: MONTELUKAST
     Indication: Ill-defined disorder
     Dosage: AT NIGHT
     Route: 048
     Dates: start: 20240424
  10. MEDROXYPROGESTERONE ACETATE [Concomitant]
     Active Substance: MEDROXYPROGESTERONE ACETATE
     Indication: Ill-defined disorder
     Route: 048
     Dates: start: 20241205, end: 20241230
  11. FERROUS FUMARATE [Concomitant]
     Active Substance: FERROUS FUMARATE
     Indication: Ill-defined disorder
     Dosage: AT 08:00
     Route: 048
     Dates: start: 20240424
  12. DOXYCYCLINE [Concomitant]
     Active Substance: DOXYCYCLINE
     Indication: Ill-defined disorder
     Dosage: 1 CAPSULE ONCE A DAY FOR 14 DAYS
     Route: 048
     Dates: start: 20250113
  13. PREDNISOLONE [Concomitant]
     Active Substance: PREDNISOLONE
     Indication: Ill-defined disorder
     Route: 048
     Dates: start: 20250110, end: 20250110
  14. AMITRIPTYLINE HYDROCHLORIDE [Concomitant]
     Active Substance: AMITRIPTYLINE HYDROCHLORIDE
     Indication: Ill-defined disorder
     Dosage: ONE TABLET AT NIGHT AS NECESSARY, DAILY DOSE: 1 DOSAGE FORM DAILY
     Route: 048
     Dates: start: 20250113
  15. ALBUTEROL [Concomitant]
     Active Substance: ALBUTEROL
     Indication: Ill-defined disorder
     Route: 055
     Dates: start: 20240424
  16. LANOLIN\LIGHT MINERAL OIL\PARAFFIN [Concomitant]
     Active Substance: LANOLIN\LIGHT MINERAL OIL\PARAFFIN
     Indication: Ill-defined disorder
     Route: 065
     Dates: start: 20240424
  17. CODEINE PHOSPHATE [Concomitant]
     Active Substance: CODEINE PHOSPHATE
     Indication: Ill-defined disorder
     Route: 048
     Dates: start: 20250113, end: 20250113
  18. SODIUM CHLORIDE [Concomitant]
     Active Substance: SODIUM CHLORIDE
     Indication: Ill-defined disorder
     Route: 065
     Dates: start: 20241128
  19. ALBUTEROL [Concomitant]
     Active Substance: ALBUTEROL
     Indication: Ill-defined disorder
     Route: 065
     Dates: start: 20241128
  20. LANSOPRAZOLE [Concomitant]
     Active Substance: LANSOPRAZOLE
     Indication: Ill-defined disorder
     Dosage: AT 08:00, DAILY DOSE: 1 DOSAGE FORM DAILY
     Route: 048
     Dates: start: 20240424
  21. TINZAPARIN [Concomitant]
     Active Substance: TINZAPARIN
     Indication: Ill-defined disorder
     Route: 065
     Dates: start: 20250110, end: 20250113

REACTIONS (1)
  - Myalgia [Recovered/Resolved]

NARRATIVE: CASE EVENT DATE: 20250113
